FAERS Safety Report 6863557-7 (Version None)
Quarter: 2010Q3

REPORT INFORMATION
  Report Type: 
  Country: None (occurrence: None)
  Receive Date: 20100721
  Receipt Date: 20080229
  Transmission Date: 20110219
  Serious: No
  Sender: FDA-Public Use
  Company Number: US-PFIZER INC-2008021438

PATIENT
  Sex: Female
  Weight: 54.545 kg

DRUGS (6)
  1. CHANTIX [Suspect]
     Indication: SMOKING CESSATION THERAPY
     Route: 048
     Dates: start: 20080201
  2. LITHIUM [Concomitant]
  3. TRAZODONE HYDROCHLORIDE [Concomitant]
  4. PROZAC [Concomitant]
  5. LASIX [Concomitant]
  6. SPIRONOLACTONE [Concomitant]

REACTIONS (1)
  - VOMITING [None]
